FAERS Safety Report 23596915 (Version 1)
Quarter: 2024Q1

REPORT INFORMATION
  Report Type: Spontaneous
  Country: JP (occurrence: JP)
  Receive Date: 20240305
  Receipt Date: 20240305
  Transmission Date: 20240410
  Serious: Yes (Death)
  Sender: FDA-Public Use
  Company Number: JP-STERISCIENCE B.V.-2024-ST-000185

PATIENT
  Age: 52 Year
  Sex: Male

DRUGS (9)
  1. MEROPENEM [Suspect]
     Active Substance: MEROPENEM
     Indication: Bacterial infection
     Dosage: 1 GRAM, BID
     Route: 065
  2. MEROPENEM [Suspect]
     Active Substance: MEROPENEM
     Indication: Evidence based treatment
  3. VANCOMYCIN [Suspect]
     Active Substance: VANCOMYCIN
     Indication: Evidence based treatment
     Dosage: UNK
     Route: 065
  4. VANCOMYCIN [Suspect]
     Active Substance: VANCOMYCIN
     Indication: Bacterial infection
  5. RITUXIMAB [Concomitant]
     Active Substance: RITUXIMAB
     Indication: Product used for unknown indication
     Dosage: UNK
     Route: 065
  6. ITRACONAZOLE [Concomitant]
     Active Substance: ITRACONAZOLE
     Indication: Infection prophylaxis
     Dosage: UNK
     Route: 065
  7. LEVOFLOXACIN [Concomitant]
     Active Substance: LEVOFLOXACIN
     Indication: Infection prophylaxis
     Dosage: UNK
     Route: 065
  8. ATOVAQUONE [Concomitant]
     Active Substance: ATOVAQUONE
     Indication: Infection prophylaxis
     Dosage: UNK
     Route: 065
  9. CEFAZOLIN [Concomitant]
     Active Substance: CEFAZOLIN
     Indication: Postoperative wound infection
     Dosage: UNK
     Route: 065

REACTIONS (1)
  - Drug ineffective [Fatal]
